FAERS Safety Report 6822483-X (Version None)
Quarter: 2010Q3

REPORT INFORMATION
  Report Type: 
  Country: None (occurrence: None)
  Receive Date: 20100708
  Receipt Date: 20100630
  Transmission Date: 20110219
  Serious: Yes (Other)
  Sender: FDA-Public Use
  Company Number: JP-BRISTOL-MYERS SQUIBB COMPANY-15179252

PATIENT
  Age: 51 Year
  Sex: Female

DRUGS (5)
  1. ABILIFY [Suspect]
     Indication: DEPRESSION
     Route: 048
     Dates: end: 20100617
  2. REMERON [Concomitant]
     Dates: end: 20100624
  3. CYMBALTA [Concomitant]
     Dates: start: 20100610, end: 20100630
  4. LIMAS [Concomitant]
     Dates: start: 20100520
  5. SILECE [Concomitant]
     Dates: end: 20100630

REACTIONS (1)
  - SEROTONIN SYNDROME [None]
